FAERS Safety Report 11193568 (Version 2)
Quarter: 2015Q3

REPORT INFORMATION
  Report Type: Report from Study
  Country: MX (occurrence: MX)
  Receive Date: 20150616
  Receipt Date: 20150714
  Transmission Date: 20151125
  Serious: Yes (Life-Threatening, Hospitalization, Other)
  Sender: FDA-Public Use
  Company Number: MX-ELI_LILLY_AND_COMPANY-MX201506002979

PATIENT
  Age: 34 Year
  Sex: Male
  Weight: 110 kg

DRUGS (2)
  1. RAMUCIRUMAB [Suspect]
     Active Substance: RAMUCIRUMAB
     Indication: GASTRIC CANCER
     Dosage: 900 MG, UNKNOWN
     Route: 065
     Dates: start: 20150522, end: 20150605
  2. NPLATE [Suspect]
     Active Substance: ROMIPLOSTIM
     Indication: THROMBOCYTOPENIA
     Dosage: UNK, UNKNOWN
     Route: 058
     Dates: start: 20150526

REACTIONS (5)
  - Pulmonary embolism [Unknown]
  - Thrombosis [Not Recovered/Not Resolved]
  - Thrombocytopenia [Unknown]
  - Haemorrhage [Unknown]
  - Subdural haematoma [Not Recovered/Not Resolved]

NARRATIVE: CASE EVENT DATE: 20150601
